FAERS Safety Report 7659732 (Version 7)
Quarter: 2014Q3

REPORT INFORMATION
  Report Type: Spontaneous
  Country: US (occurrence: US)
  Receive Date: 20101008
  Receipt Date: 20140707
  Transmission Date: 20150326
  Serious: Yes (Hospitalization, Disabling, Other)
  Sender: FDA-Public Use
  Company Number: US-009507513-2010SP008200

PATIENT
  Sex: Female
  Weight: 72.58 kg

DRUGS (7)
  1. SINGULAIR [Concomitant]
     Active Substance: MONTELUKAST SODIUM
     Indication: ASTHMA
     Dosage: ^CINGULAR^
     Dates: start: 1993
  2. NUVARING [Suspect]
     Active Substance: ETHINYL ESTRADIOL\ETONOGESTREL
     Indication: MENSTRUAL DISORDER
  3. ADVAIR HFA [Concomitant]
     Active Substance: FLUTICASONE PROPIONATE\SALMETEROL XINAFOATE
     Dosage: UNK UNK, BID
     Route: 055
     Dates: start: 20040524
  4. ANESTHETIC (UNSPECIFIED) [Concomitant]
     Dosage: 4 WEEKS PRIOR TO DVT
     Route: 008
  5. PROMETRIUM [Suspect]
     Active Substance: PROGESTERONE
     Indication: MENSTRUATION IRREGULAR
     Dates: start: 2007, end: 2007
  6. NUVARING [Suspect]
     Active Substance: ETHINYL ESTRADIOL\ETONOGESTREL
     Indication: CONTRACEPTION
     Dates: start: 20050925, end: 200605
  7. TOPAMAX [Concomitant]
     Active Substance: TOPIRAMATE
     Dosage: 50 MG, BID
     Route: 048

REACTIONS (24)
  - Exostosis [Unknown]
  - Ovarian cyst [Unknown]
  - Intermittent claudication [Unknown]
  - Syncope [Unknown]
  - Cyst [Unknown]
  - Nausea [Unknown]
  - Menorrhagia [Unknown]
  - Bronchial hyperreactivity [Unknown]
  - Migraine [Not Recovered/Not Resolved]
  - Vasculitis [Unknown]
  - Foot operation [Unknown]
  - Cataract [Unknown]
  - Deep vein thrombosis [Not Recovered/Not Resolved]
  - Hepatic enzyme increased [Unknown]
  - Embolism venous [Unknown]
  - Ovarian cancer [Unknown]
  - Angiopathy [Not Recovered/Not Resolved]
  - Tinea versicolour [Unknown]
  - Weight decreased [Unknown]
  - Rash pruritic [Unknown]
  - Osteoarthritis [Unknown]
  - Breast cancer [Unknown]
  - Asthenia [Unknown]
  - Arthralgia [Unknown]

NARRATIVE: CASE EVENT DATE: 200510
